FAERS Safety Report 11773980 (Version 1)
Quarter: 2015Q4

REPORT INFORMATION
  Report Type: Report from Study
  Country: BR (occurrence: BR)
  Receive Date: 20151124
  Receipt Date: 20151124
  Transmission Date: 20160304
  Serious: Yes (Other)
  Sender: FDA-Public Use
  Company Number: BR-GLAXOSMITHKLINE-BR2015GSK167123

PATIENT
  Sex: Female
  Weight: 132 kg

DRUGS (1)
  1. FLUTICASONE PROPIONATE+SALMETEROL XINAFOATE [Suspect]
     Active Substance: FLUTICASONE PROPIONATE\SALMETEROL XINAFOATE
     Indication: RESPIRATORY DISORDER
     Dosage: UNK, USED SERETIDE SPRAY 120 DOSES/125MCG

REACTIONS (4)
  - Hypersensitivity [Unknown]
  - Wrong technique in product usage process [Unknown]
  - Intervertebral disc protrusion [Unknown]
  - Dyspnoea [Unknown]
